FAERS Safety Report 18590880 (Version 26)
Quarter: 2024Q3

REPORT INFORMATION
  Report Type: Spontaneous
  Country: US (occurrence: US)
  Receive Date: 20201208
  Receipt Date: 20240709
  Transmission Date: 20241017
  Serious: Yes (Death, Other)
  Sender: PFIZER
  Company Number: US-PFIZER INC-2020477090

PATIENT
  Age: 78 Year
  Sex: Female
  Weight: 61 kg

DRUGS (3)
  1. IBRANCE [Suspect]
     Active Substance: PALBOCICLIB
     Indication: Breast cancer stage IV
     Dosage: 125 MG, CYCLIC (FOR 21 DAYS THEN OFF 7 DAYS)
     Route: 048
     Dates: start: 20200928
  2. IBRANCE [Suspect]
     Active Substance: PALBOCICLIB
     Dosage: 100 MG
  3. FASLODEX [Concomitant]
     Active Substance: FULVESTRANT
     Dosage: UNK

REACTIONS (20)
  - Death [Fatal]
  - Infection susceptibility increased [Unknown]
  - Fall [Unknown]
  - Joint injury [Unknown]
  - Dementia [Unknown]
  - Nervousness [Unknown]
  - Glycosylated haemoglobin increased [Unknown]
  - White blood cell count decreased [Not Recovered/Not Resolved]
  - Rash [Unknown]
  - Oral mucosal eruption [Unknown]
  - Fatigue [Unknown]
  - Anxiety [Unknown]
  - Alopecia [Unknown]
  - Full blood count decreased [Unknown]
  - Anaemia [Unknown]
  - Depressed mood [Unknown]
  - Malaise [Unknown]
  - Brain fog [Unknown]
  - Memory impairment [Not Recovered/Not Resolved]
  - Amnesia [Unknown]

NARRATIVE: CASE EVENT DATE: 20200101
